FAERS Safety Report 21184760 (Version 3)
Quarter: 2022Q3

REPORT INFORMATION
  Report Type: Report from Study
  Country: AU (occurrence: AU)
  Receive Date: 20220808
  Receipt Date: 20220920
  Transmission Date: 20221027
  Serious: Yes (Hospitalization)
  Sender: FDA-Public Use
  Company Number: AU-JNJFOC-20220756582

PATIENT
  Age: 74 Year
  Sex: Female
  Weight: 69.4 kg

DRUGS (9)
  1. ESKETAMINE [Suspect]
     Active Substance: ESKETAMINE
     Indication: Major depression
     Dates: start: 20170822, end: 20220719
  2. SERTRALINE [Concomitant]
     Active Substance: SERTRALINE HYDROCHLORIDE
     Route: 065
  3. DULCOLAX (BISACODYL) [Concomitant]
     Active Substance: BISACODYL
     Route: 048
  4. ERGOCALCIFEROL [Concomitant]
     Active Substance: ERGOCALCIFEROL
  5. HEXAMINE [METHENAMINE] [Concomitant]
  6. VITAMIN C [Concomitant]
     Active Substance: ASCORBIC ACID
  7. ESTRIOL [Concomitant]
     Active Substance: ESTRIOL
     Route: 061
  8. PREDNISOLONE [Concomitant]
     Active Substance: PREDNISOLONE
  9. ACETAMINOPHEN [Concomitant]
     Active Substance: ACETAMINOPHEN

REACTIONS (1)
  - Pancreatitis relapsing [Recovered/Resolved]

NARRATIVE: CASE EVENT DATE: 20220727
